FAERS Safety Report 17334822 (Version 4)
Quarter: 2020Q1

REPORT INFORMATION
  Report Type: Spontaneous
  Country: US (occurrence: US)
  Receive Date: 20200128
  Receipt Date: 20200330
  Transmission Date: 20200409
  Serious: No
  Sender: FDA-Public Use
  Company Number: US-BAUSCH-BL-2020-001387

PATIENT
  Age: 64 Year
  Sex: Male
  Weight: 113.5 kg

DRUGS (3)
  1. LUMIFY [Suspect]
     Active Substance: BRIMONIDINE TARTRATE
     Dosage: FREQUENCY: AS NEEDED
     Route: 047
     Dates: start: 20200112, end: 20200114
  2. LUMIFY [Suspect]
     Active Substance: BRIMONIDINE TARTRATE
     Indication: OCULAR HYPERAEMIA
     Dosage: START DATE: OVER A YEAR AGO FROM THE INITIAL REPORT, ?FREQUENCY: AS NEEDED
     Route: 047
  3. SOOTHE XP [Concomitant]
     Active Substance: LIGHT MINERAL OIL\MINERAL OIL
     Indication: DRY EYE
     Dosage: TWO DROPS IN EACH EYE SEVERAL TIMES A DAY
     Route: 047

REACTIONS (3)
  - Inappropriate schedule of product administration [Unknown]
  - Eye irritation [Recovered/Resolved]
  - Product counterfeit [Unknown]

NARRATIVE: CASE EVENT DATE: 20200112
